FAERS Safety Report 26105677 (Version 1)
Quarter: 2025Q4

REPORT INFORMATION
  Report Type: Spontaneous
  Country: US (occurrence: US)
  Receive Date: 20251201
  Receipt Date: 20251201
  Transmission Date: 20260118
  Serious: No
  Sender: BAUSCH AND LOMB
  Company Number: US-BAUSCHBL-2025BNL032782

PATIENT
  Age: 79 Year
  Sex: Female

DRUGS (2)
  1. XIIDRA [Suspect]
     Active Substance: LIFITEGRAST
     Indication: Dry eye
     Dosage: 1 DROP IN BOTH EYES TWICE A DAY
     Route: 047
     Dates: start: 2025
  2. MIEBO [Suspect]
     Active Substance: PERFLUOROHEXYLOCTANE
     Indication: Dry eye
     Dosage: 1 DROP IN EACH EYE 4 TIMES A DAY
     Route: 047
     Dates: start: 202511

REACTIONS (5)
  - Eye haemorrhage [Unknown]
  - Chalazion [Unknown]
  - Condition aggravated [Unknown]
  - Dysgeusia [Unknown]
  - Eye irritation [Unknown]

NARRATIVE: CASE EVENT DATE: 20250101
